FAERS Safety Report 9655835 (Version 1)
Quarter: 2013Q4

REPORT INFORMATION
  Report Type: Spontaneous
  Country: US (occurrence: US)
  Receive Date: 20131030
  Receipt Date: 20131030
  Transmission Date: 20140711
  Serious: Yes (Hospitalization)
  Sender: FDA-Public Use
  Company Number: US-ROCHE-1296650

PATIENT
  Sex: Female

DRUGS (1)
  1. XELODA [Suspect]
     Indication: VULVAL CANCER
     Dosage: 2 WEEKS ON 1 OFF
     Route: 048
     Dates: start: 201207, end: 201210

REACTIONS (1)
  - Disease progression [Unknown]
